FAERS Safety Report 12691468 (Version 1)
Quarter: 2016Q3

REPORT INFORMATION
  Report Type: Spontaneous
  Country: US (occurrence: US)
  Receive Date: 20160826
  Receipt Date: 20160826
  Transmission Date: 20161109
  Serious: Yes (Other)
  Sender: FDA-Public Use
  Company Number: US-ASTRAZENECA-2016SE89803

PATIENT
  Age: 88 Year
  Sex: Male
  Weight: 77.1 kg

DRUGS (3)
  1. MANY MEDICATIONS [Concomitant]
  2. ANTI-FUNGAL [Concomitant]
     Active Substance: TOLNAFTATE
     Indication: FUNGAL INFECTION
     Route: 065
  3. FARXIGA [Suspect]
     Active Substance: DAPAGLIFLOZIN PROPANEDIOL
     Indication: TYPE 2 DIABETES MELLITUS
     Route: 048
     Dates: start: 2014, end: 2015

REACTIONS (4)
  - Fungal infection [Not Recovered/Not Resolved]
  - Genital rash [Unknown]
  - Skin odour abnormal [Unknown]
  - Penile cancer [Unknown]

NARRATIVE: CASE EVENT DATE: 201608
